FAERS Safety Report 20763636 (Version 2)
Quarter: 2022Q2

REPORT INFORMATION
  Report Type: Spontaneous
  Country: US (occurrence: US)
  Receive Date: 20220428
  Receipt Date: 20220512
  Transmission Date: 20220721
  Serious: No
  Sender: FDA-Public Use
  Company Number: US-PFIZER INC-202200484175

PATIENT
  Age: 59 Year
  Sex: Female

DRUGS (4)
  1. IBRANCE [Suspect]
     Active Substance: PALBOCICLIB
     Dosage: 100 MG, 21 DAYS ON, 7 DAYS OFF
     Route: 048
     Dates: start: 20220126
  2. IBUPROFEN [Concomitant]
     Active Substance: IBUPROFEN
     Dosage: UNK
  3. LETROZOLE [Concomitant]
     Active Substance: LETROZOLE
     Dosage: UNK
  4. NORCO [Concomitant]
     Active Substance: ACETAMINOPHEN\HYDROCODONE BITARTRATE
     Dosage: UNK

REACTIONS (4)
  - Full blood count abnormal [Unknown]
  - Joint swelling [Unknown]
  - Peripheral swelling [Unknown]
  - Swelling of eyelid [Unknown]

NARRATIVE: CASE EVENT DATE: 20220101
